FAERS Safety Report 5171719-2 (Version None)
Quarter: 2006Q4

REPORT INFORMATION
  Report Type: 
  Country: None (occurrence: None)
  Receive Date: 20061213
  Receipt Date: 20061031
  Transmission Date: 20070319
  Serious: Yes (Hospitalization, Other)
  Sender: FDA-Public Use
  Company Number: US-ELI_LILLY_AND_COMPANY-US200611001425

PATIENT
  Age: 60 Year
  Sex: Male
  Weight: 90.702 kg

DRUGS (7)
  1. CYMBALTA [Suspect]
     Indication: DEPRESSION
     Dosage: 20 MG, UNK
     Dates: start: 20060926, end: 20061017
  2. LORAZEPAM [Concomitant]
     Dosage: 1 MG, 3/D
  3. ZOLPIDEM TARTRATE [Concomitant]
     Dosage: 10 MG, EACH EVENING
  4. PROCARDIA XL [Concomitant]
     Dosage: 60 MG, DAILY (1/D)
  5. ZOCOR [Concomitant]
     Dosage: 20 MG, DAILY (1/D)
  6. PROSCAR                                 /USA/ [Concomitant]
     Dosage: UNK MG, DAILY (1/D)
  7. POTASSIUM ACETATE [Concomitant]

REACTIONS (4)
  - ADRENAL ADENOMA [None]
  - BLOOD POTASSIUM DECREASED [None]
  - MICTURITION URGENCY [None]
  - POLLAKIURIA [None]
